FAERS Safety Report 9228125 (Version 1)
Quarter: 2013Q2

REPORT INFORMATION
  Report Type: Spontaneous
  Country: BR (occurrence: BR)
  Receive Date: 20130412
  Receipt Date: 20130412
  Transmission Date: 20140414
  Serious: Yes (Death, Other)
  Sender: FDA-Public Use
  Company Number: BR-ROCHE-1210992

PATIENT
  Age: 72 Year
  Sex: Female

DRUGS (3)
  1. METALYSE [Suspect]
     Indication: ACUTE MYOCARDIAL INFARCTION
     Dosage: BOLUS
     Route: 065
  2. HEPARIN [Suspect]
     Indication: ACUTE MYOCARDIAL INFARCTION
     Route: 065
  3. HEPARIN [Suspect]
     Dosage: 1000 IU/H
     Route: 065

REACTIONS (6)
  - Cardiac tamponade [Fatal]
  - Ventricle rupture [Fatal]
  - Cardiac arrest [Fatal]
  - Pulseless electrical activity [Fatal]
  - Cardiogenic shock [Fatal]
  - Abdominal pain upper [Unknown]
